FAERS Safety Report 8523887 (Version 3)
Quarter: 2013Q1

REPORT INFORMATION
  Report Type: Report from Study
  Country: US (occurrence: US)
  Receive Date: 20120420
  Receipt Date: 20130129
  Transmission Date: 20140127
  Serious: Yes (Hospitalization)
  Sender: FDA-Public Use
  Company Number: US-ACTELION-A-US2012-63772

PATIENT
  Age: 44 Year
  Sex: Female

DRUGS (4)
  1. TRACLEER [Suspect]
     Indication: PULMONARY ARTERIAL HYPERTENSION
     Dosage: UNK MG, UNK
     Route: 048
  2. ADCIRCA [Concomitant]
  3. COUMADIN [Concomitant]
  4. CALCIUM CHANNEL BLOCKERS [Concomitant]

REACTIONS (8)
  - Therapeutic procedure [Unknown]
  - Pneumonia [Unknown]
  - Heart rate increased [Unknown]
  - Cardioversion [Recovering/Resolving]
  - Ventricular tachycardia [Recovering/Resolving]
  - Cardiac ablation [Recovering/Resolving]
  - Syncope [Recovering/Resolving]
  - Atrial flutter [Recovering/Resolving]
